FAERS Safety Report 7156450-6 (Version None)
Quarter: 2010Q4

REPORT INFORMATION
  Report Type: 
  Country: None (occurrence: None)
  Receive Date: 20101214
  Receipt Date: 20101207
  Transmission Date: 20110411
  Serious: Yes (Hospitalization)
  Sender: FDA-Public Use
  Company Number: IT-PFIZER INC-IT-WYE-G05595510

PATIENT
  Age: 54 Year
  Sex: Female

DRUGS (7)
  1. CARDURA [Suspect]
     Dosage: 4 MG, 1X/DAY
     Route: 048
     Dates: start: 20080101, end: 20100206
  2. TAZOCIN [Suspect]
     Indication: SEPSIS
     Dosage: 13.5 G, 1X/DAY
     Route: 042
     Dates: start: 20100114, end: 20100202
  3. DINTOINA [Suspect]
     Indication: EPILEPSY
     Dosage: 300 MG, 1X/DAY
     Route: 048
     Dates: start: 20100112, end: 20100127
  4. VANCOMYCIN [Suspect]
     Indication: SEPSIS
     Dosage: 2 G, 1X/DAY
     Route: 042
     Dates: start: 20100113, end: 20100202
  5. FLAGYL [Suspect]
     Indication: SEPSIS
     Dosage: 1.5 G, 1X/DAY
     Route: 048
     Dates: start: 20100125, end: 20100202
  6. FOLIC ACID ^SAD^ [Concomitant]
     Dosage: UNK
     Route: 048
     Dates: start: 20100114
  7. HEPARIN-FRACTION [Concomitant]
     Dosage: UNK
     Route: 065
     Dates: start: 20080101

REACTIONS (1)
  - DERMATITIS EXFOLIATIVE [None]
